FAERS Safety Report 17165355 (Version 1)
Quarter: 2019Q4

REPORT INFORMATION
  Report Type: Report from Study
  Country: CO (occurrence: CO)
  Receive Date: 20191217
  Receipt Date: 20191217
  Transmission Date: 20200122
  Serious: Yes (Other)
  Sender: FDA-Public Use
  Company Number: CO-JNJFOC-20160319403

PATIENT
  Age: 89 Year
  Sex: Male
  Weight: 58 kg

DRUGS (1)
  1. IMBRUVICA [Suspect]
     Active Substance: IBRUTINIB
     Indication: CHRONIC LYMPHOCYTIC LEUKAEMIA
     Route: 048
     Dates: start: 20151224

REACTIONS (3)
  - Platelet count decreased [Not Recovered/Not Resolved]
  - Product dose omission [Unknown]
  - Restlessness [Unknown]

NARRATIVE: CASE EVENT DATE: 20160308
